FAERS Safety Report 9516265 (Version 1)
Quarter: 2013Q3

REPORT INFORMATION
  Report Type: Spontaneous
  Country: CH (occurrence: CH)
  Receive Date: 20130911
  Receipt Date: 20130911
  Transmission Date: 20140515
  Serious: Yes (Other)
  Sender: FDA-Public Use
  Company Number: CH-BAYER-2013-107396

PATIENT
  Sex: Female

DRUGS (1)
  1. MIRENA [Suspect]

REACTIONS (2)
  - Abscess [Unknown]
  - Cyst [Unknown]
